FAERS Safety Report 7502654-X (Version None)
Quarter: 2011Q2

REPORT INFORMATION
  Report Type: 
  Country: None (occurrence: None)
  Receive Date: 20110525
  Receipt Date: 20110513
  Transmission Date: 20111010
  Serious: Yes (Hospitalization, Other)
  Sender: FDA-Public Use
  Company Number: PHHY2011AU39235

PATIENT
  Sex: Male

DRUGS (6)
  1. VALPROATE BISMUTH [Concomitant]
     Dosage: 1000 MG, UNK
  2. CLOZARIL [Suspect]
     Dosage: 500 MG, UNK
     Dates: start: 20100428
  3. CLOZARIL [Suspect]
     Indication: SCHIZOPHRENIA
     Dosage: 450 MG, UNK
     Dates: start: 20100422
  4. CLOZARIL [Suspect]
     Dosage: 525 MG, UNK
     Dates: start: 20110506
  5. CLOZARIL [Suspect]
     Dosage: 550 MG, UNK
     Dates: start: 20100506
  6. VALPROATE BISMUTH [Concomitant]
     Dosage: 500 MG, UNK

REACTIONS (4)
  - SCHIZOPHRENIA [None]
  - ELECTROCARDIOGRAM QT PROLONGED [None]
  - SINUS TACHYCARDIA [None]
  - ELECTROCARDIOGRAM ABNORMAL [None]
